FAERS Safety Report 17932344 (Version 3)
Quarter: 2020Q2

REPORT INFORMATION
  Report Type: Spontaneous
  Country: US (occurrence: US)
  Receive Date: 20200623
  Receipt Date: 20200629
  Transmission Date: 20200714
  Serious: No
  Sender: FDA-Public Use
  Company Number: US-PFIZER INC-2020242061

PATIENT
  Sex: Female
  Weight: 69.4 kg

DRUGS (1)
  1. NEURONTIN [Suspect]
     Active Substance: GABAPENTIN
     Indication: BACK INJURY
     Dosage: UNK

REACTIONS (7)
  - Tremor [Unknown]
  - Off label use [Unknown]
  - Product use in unapproved indication [Unknown]
  - Oral mucosal blistering [Unknown]
  - Vision blurred [Recovering/Resolving]
  - Thirst [Unknown]
  - Lip blister [Unknown]
